FAERS Safety Report 4879441-4 (Version None)
Quarter: 2005Q4

REPORT INFORMATION
  Report Type: 
  Country: None (occurrence: None)
  Receive Date: 20051209
  Receipt Date: 20050907
  Transmission Date: 20060501
  Serious: Yes (Other)
  Sender: FDA-Public Use
  Company Number: USA-2002-0000671

PATIENT
  Age: 33 Year
  Sex: Female
  Weight: 68 kg

DRUGS (4)
  1. OXYCONTIN [Suspect]
     Dosage: 20 MG, ORAL
     Route: 048
     Dates: start: 20000101, end: 20010101
  2. VIOXX [Concomitant]
  3. SOMA [Concomitant]
  4. XANAX [Concomitant]

REACTIONS (3)
  - DRUG DEPENDENCE [None]
  - DRUG WITHDRAWAL SYNDROME [None]
  - MUSCLE SPASMS [None]
